FAERS Safety Report 15988417 (Version 3)
Quarter: 2019Q2

REPORT INFORMATION
  Report Type: Spontaneous
  Country: US (occurrence: US)
  Receive Date: 20190221
  Receipt Date: 20190405
  Transmission Date: 20190711
  Serious: Yes (Other)
  Sender: FDA-Public Use
  Company Number: US-HIKMA PHARMACEUTICALS USA INC.-US-H14001-19-00964

PATIENT
  Age: 62 Year
  Sex: Female

DRUGS (3)
  1. TRAMADOL. [Suspect]
     Active Substance: TRAMADOL
     Indication: PRODUCT USED FOR UNKNOWN INDICATION
     Route: 065
  2. MORPHINE IR (RHODES PHARMACEUTICALS) [Suspect]
     Active Substance: MORPHINE SULFATE
     Route: 065
     Dates: start: 2002, end: 2018
  3. MORPHINE ER [Suspect]
     Active Substance: MORPHINE
     Indication: PRODUCT USED FOR UNKNOWN INDICATION
     Route: 065
     Dates: start: 2002

REACTIONS (9)
  - Drug withdrawal syndrome [Unknown]
  - Blood pressure fluctuation [Unknown]
  - Visual impairment [Unknown]
  - Brain injury [Unknown]
  - Sleep apnoea syndrome [Unknown]
  - Headache [Unknown]
  - Pain [Unknown]
  - Hypertension [Unknown]
  - Cerebral small vessel ischaemic disease [Unknown]

NARRATIVE: CASE EVENT DATE: 201809
